FAERS Safety Report 8016418-4 (Version None)
Quarter: 2011Q4

REPORT INFORMATION
  Report Type: 
  Country: None (occurrence: None)
  Receive Date: 20111230
  Receipt Date: 20111223
  Transmission Date: 20120403
  Serious: Yes (Death)
  Sender: FDA-Public Use
  Company Number: KR-SANOFI-AVENTIS-2011SA084485

PATIENT

DRUGS (5)
  1. CALCIUM CHANNEL BLOCKERS [Interacting]
     Indication: ANTIPLATELET THERAPY
     Route: 065
  2. ASPIRIN [Concomitant]
     Dosage: BEFORE PCI
  3. HEPARIN SODIUM [Concomitant]
     Route: 042
  4. CLOPIDOGREL BISULFATE [Suspect]
     Indication: ANTIPLATELET THERAPY
     Dosage: LOADING DOSE: 300-600 MG
     Route: 065
  5. ASPIRIN [Concomitant]
     Dosage: AFTER PCI

REACTIONS (2)
  - DRUG INTERACTION [None]
  - CARDIAC DEATH [None]
